FAERS Safety Report 10458733 (Version 1)
Quarter: 2014Q3

REPORT INFORMATION
  Report Type: Spontaneous
  Country: US (occurrence: None)
  Receive Date: 20140916
  Receipt Date: 20140916
  Transmission Date: 20150326
  Serious: No
  Sender: FDA-Public Use
  Company Number: None

PATIENT
  Age: 88 Year
  Sex: Female
  Weight: 77.11 kg

DRUGS (2)
  1. METHYLPREDNISOLONE 4 MG DOSEPK CADISTA [Suspect]
     Active Substance: METHYLPREDNISOLONE
     Indication: MOUTH HAEMORRHAGE
     Dosage: ONLY 21 PILLS, 4 MG, 3 - 2 - 2, MOUTH?
     Route: 048
     Dates: start: 20140828, end: 20140829
  2. METHYLPREDNISOLONE 4 MG DOSEPK CADISTA [Suspect]
     Active Substance: METHYLPREDNISOLONE
     Indication: ARTHROPOD STING
     Dosage: ONLY 21 PILLS, 4 MG, 3 - 2 - 2, MOUTH?
     Route: 048
     Dates: start: 20140828, end: 20140829

REACTIONS (1)
  - Pharyngeal haemorrhage [None]

NARRATIVE: CASE EVENT DATE: 20140828
